FAERS Safety Report 5933881-0 (Version None)
Quarter: 2008Q4

REPORT INFORMATION
  Report Type: 
  Country: None (occurrence: None)
  Receive Date: 20081029
  Receipt Date: 20081021
  Transmission Date: 20090506
  Serious: Yes (Other)
  Sender: FDA-Public Use
  Company Number: GB-TEVA-179387ISR

PATIENT
  Age: 61 Year
  Sex: Female

DRUGS (2)
  1. VALPROIC ACID [Suspect]
     Indication: BIPOLAR DISORDER
     Route: 048
  2. ZUCLOPENTHIXOL [Suspect]
     Indication: BIPOLAR DISORDER
     Route: 030
     Dates: start: 20080515

REACTIONS (1)
  - DYSTONIA [None]
